FAERS Safety Report 4951008-9 (Version None)
Quarter: 2006Q1

REPORT INFORMATION
  Report Type: 
  Country: None (occurrence: None)
  Receive Date: 20060322
  Receipt Date: 20060313
  Transmission Date: 20060701
  Serious: Yes (Hospitalization)
  Sender: FDA-Public Use
  Company Number: FR-ABBOTT-06P-056-0327714-00

PATIENT
  Age: 82 Year
  Sex: Male

DRUGS (10)
  1. DEPAKENE [Suspect]
     Indication: EPILEPSY
     Route: 048
     Dates: start: 20040621
  2. MOLSIDOMINE [Concomitant]
     Indication: ISCHAEMIC CARDIOMYOPATHY
     Route: 048
  3. FUROSEMIDE [Concomitant]
     Indication: ESSENTIAL HYPERTENSION
     Route: 048
     Dates: start: 20040601
  4. CARBAMAZEPINE [Concomitant]
     Indication: EPILEPSY
     Route: 048
     Dates: start: 20060119, end: 20060120
  5. CLOPIDOGREL BISULFATE [Concomitant]
     Indication: DRUG USE FOR UNKNOWN INDICATION
     Route: 048
     Dates: start: 20040601, end: 20060120
  6. RAMIPRIL [Concomitant]
     Indication: ESSENTIAL HYPERTENSION
     Route: 048
  7. PRAVASTATIN SODIUM [Concomitant]
     Indication: DRUG USE FOR UNKNOWN INDICATION
     Route: 048
  8. POTASSIUM CHLORIDE [Concomitant]
     Indication: DRUG USE FOR UNKNOWN INDICATION
     Route: 048
  9. ALLOPURINOL [Concomitant]
     Indication: DRUG USE FOR UNKNOWN INDICATION
     Route: 048
  10. FINASTERIDE [Concomitant]
     Indication: DRUG USE FOR UNKNOWN INDICATION
     Route: 048

REACTIONS (8)
  - BALANCE DISORDER [None]
  - CONFUSIONAL STATE [None]
  - DRUG INTOLERANCE [None]
  - FALL [None]
  - GAIT DEVIATION [None]
  - HEART RATE IRREGULAR [None]
  - MALAISE [None]
  - THROMBOCYTOPENIA [None]
